FAERS Safety Report 11225330 (Version 1)
Quarter: 2015Q2

REPORT INFORMATION
  Report Type: Spontaneous
  Country: US (occurrence: None)
  Receive Date: 20150626
  Receipt Date: 20150626
  Transmission Date: 20150821
  Serious: Yes (Disabling)
  Sender: FDA-Public Use
  Company Number: None

PATIENT
  Age: 16 Year
  Sex: Male

DRUGS (4)
  1. INFLUENZA VACCINE [Concomitant]
     Active Substance: INFLUENZA VIRUS VACCINE
  2. CEPHALEXIN 500 MG. CAPSULE TEVA USA [Suspect]
     Active Substance: CEPHALEXIN
     Indication: ECZEMA WEEPING
     Route: 048
     Dates: start: 20150226, end: 20150308
  3. DIPHENHYDRAMINE 25MG CAPSULE QUALITEST [Suspect]
     Active Substance: DIPHENHYDRAMINE
     Indication: DERMATITIS
     Dosage: 1- EVERY 4 TO 6 HRS (5 DAYS) ?IF NEEDED?ORAL-BY MOUTH
     Route: 048
     Dates: start: 201112, end: 201112
  4. TERBINAFIME [Concomitant]

REACTIONS (14)
  - Rubber sensitivity [None]
  - Tension [None]
  - Skin haemorrhage [None]
  - Chemical injury [None]
  - Skin disorder [None]
  - Pruritus [None]
  - Drug ineffective [None]
  - Capillary leak syndrome [None]
  - Skin discolouration [None]
  - Skin infection [None]
  - Haemoconcentration [None]
  - Rhinorrhoea [None]
  - Body temperature decreased [None]
  - Drug hypersensitivity [None]

NARRATIVE: CASE EVENT DATE: 20150226
